FAERS Safety Report 8579495-8 (Version None)
Quarter: 2012Q3

REPORT INFORMATION
  Report Type: 
  Country: None (occurrence: None)
  Receive Date: 20120808
  Receipt Date: 20100809
  Transmission Date: 20120928
  Serious: Yes (Hospitalization)
  Sender: FDA-Public Use
  Company Number: JP-GLAXOSMITHKLINE-B0669827A

PATIENT
  Sex: Female

DRUGS (2)
  1. LAMICTAL [Suspect]
     Indication: EPILEPSY
     Dosage: 50MG PER DAY
     Route: 048
     Dates: start: 20100510, end: 20100624
  2. DEPAKENE [Suspect]
     Indication: EPILEPSY
     Dosage: 800MG PER DAY
     Route: 048
     Dates: start: 20100425

REACTIONS (10)
  - ANAL HAEMORRHAGE [None]
  - ANAL EROSION [None]
  - RASH GENERALISED [None]
  - PERIPROCTITIS [None]
  - DRUG RASH WITH EOSINOPHILIA AND SYSTEMIC SYMPTOMS [None]
  - TOXIC SKIN ERUPTION [None]
  - RASH [None]
  - PYREXIA [None]
  - GENERALISED ERYTHEMA [None]
  - LYMPHOCYTE STIMULATION TEST POSITIVE [None]
